FAERS Safety Report 4589485-8 (Version None)
Quarter: 2005Q1

REPORT INFORMATION
  Report Type: 
  Country: None (occurrence: None)
  Receive Date: 20050223
  Receipt Date: 20050211
  Transmission Date: 20050727
  Serious: Yes (Congenital Anomaly, Other)
  Sender: FDA-Public Use
  Company Number: GB-BRISTOL-MYERS SQUIBB COMPANY-12862173

PATIENT
  Age: 32 Year
  Sex: Female

DRUGS (1)
  1. METFORMIN HCL [Suspect]
     Indication: POLYCYSTIC OVARIES
     Dates: start: 20041001, end: 20041201

REACTIONS (3)
  - ABORTION [None]
  - CYSTIC LYMPHANGIOMA [None]
  - PREGNANCY [None]
